FAERS Safety Report 9095164 (Version 1)
Quarter: 2013Q1

REPORT INFORMATION
  Report Type: Spontaneous
  Country: BR (occurrence: BR)
  Receive Date: 20130220
  Receipt Date: 20130220
  Transmission Date: 20140127
  Serious: Yes (Death)
  Sender: FDA-Public Use
  Company Number: PHHY2012BR127553

PATIENT
  Age: 90 Year
  Sex: Male

DRUGS (3)
  1. FORASEQ [Suspect]
     Indication: CHRONIC OBSTRUCTIVE PULMONARY DISEASE
     Dosage: 1 DF, BID (12/200MCG EVERY 12 HOURS)
  2. FORASEQ [Suspect]
     Dosage: 3 DF, QD (12/200MCG 3 TIMES DAILY)
  3. FORASEQ [Suspect]
     Dosage: 1 DF, QD (12/400 MCG)

REACTIONS (2)
  - Fibrosis [Fatal]
  - Emphysema [Fatal]
